FAERS Safety Report 25684596 (Version 1)
Quarter: 2025Q3

REPORT INFORMATION
  Report Type: Report from Study
  Country: CA (occurrence: CA)
  Receive Date: 20250815
  Receipt Date: 20250815
  Transmission Date: 20251021
  Serious: Yes (Other)
  Sender: ABBVIE
  Company Number: CA-ABBVIE-6416633

PATIENT
  Age: 82 Year
  Sex: Male
  Weight: 64.4 kg

DRUGS (1)
  1. SKYRIZI [Suspect]
     Active Substance: RISANKIZUMAB-RZAA
     Indication: Crohn^s disease
     Route: 058

REACTIONS (8)
  - Intestinal resection [Unknown]
  - Faeces soft [Unknown]
  - Faeces hard [Unknown]
  - Neoplasm [Unknown]
  - Impaired work ability [Unknown]
  - Social problem [Unknown]
  - Arthralgia [Unknown]
  - Bone cancer [Unknown]

NARRATIVE: CASE EVENT DATE: 20241101
